FAERS Safety Report 10101665 (Version 1)
Quarter: 2014Q2

REPORT INFORMATION
  Report Type: Spontaneous
  Country: BR (occurrence: BR)
  Receive Date: 20140424
  Receipt Date: 20140424
  Transmission Date: 20141212
  Serious: Yes (Hospitalization)
  Sender: FDA-Public Use
  Company Number: BR-ASTRAZENECA-2014SE26753

PATIENT
  Age: 79 Year
  Sex: Female

DRUGS (2)
  1. CRESTOR [Suspect]
     Indication: BLOOD CHOLESTEROL INCREASED
     Route: 048
  2. SOMALGIN [Suspect]
     Indication: CAROTID ARTERY OCCLUSION
     Dosage: DAILY
     Route: 048
     Dates: end: 201404

REACTIONS (1)
  - Gastric haemorrhage [Recovered/Resolved]
